FAERS Safety Report 15253276 (Version 1)
Quarter: 2018Q3

REPORT INFORMATION
  Report Type: Spontaneous
  Country: US (occurrence: US)
  Receive Date: 20180807
  Receipt Date: 20180807
  Transmission Date: 20181010
  Serious: Yes (Hospitalization)
  Sender: FDA-Public Use
  Company Number: PHHY2018US059387

PATIENT
  Age: 83 Year
  Sex: Male

DRUGS (6)
  1. LEUCOVORIN. [Suspect]
     Active Substance: LEUCOVORIN
     Indication: RECTAL CANCER STAGE IV
     Route: 041
  2. BEVACIZUMAB. [Concomitant]
     Active Substance: BEVACIZUMAB
     Indication: RECTAL CANCER STAGE IV
     Route: 041
  3. DEXAMETHASONE. [Concomitant]
     Active Substance: DEXAMETHASONE
     Indication: PREMEDICATION
     Route: 065
  4. OXALIPLATIN. [Suspect]
     Active Substance: OXALIPLATIN
     Indication: RECTAL CANCER STAGE IV
     Route: 041
  5. PALONOSETRON. [Suspect]
     Active Substance: PALONOSETRON HYDROCHLORIDE
     Indication: PREMEDICATION
     Route: 065
  6. 5 FU [Concomitant]
     Active Substance: FLUOROURACIL
     Indication: RECTAL CANCER STAGE IV
     Route: 041

REACTIONS (9)
  - Back pain [Unknown]
  - Microangiopathic haemolytic anaemia [Recovering/Resolving]
  - Immune system disorder [Recovering/Resolving]
  - Normochromic normocytic anaemia [Recovering/Resolving]
  - Thrombocytopenia [Recovering/Resolving]
  - Thrombotic microangiopathy [Unknown]
  - Intravascular haemolysis [Unknown]
  - Acute kidney injury [Recovering/Resolving]
  - Chills [Unknown]
